FAERS Safety Report 4832419-9 (Version None)
Quarter: 2005Q4

REPORT INFORMATION
  Report Type: 
  Country: None (occurrence: None)
  Receive Date: 20051117
  Receipt Date: 20051101
  Transmission Date: 20060501
  Serious: Yes (Hospitalization)
  Sender: FDA-Public Use
  Company Number: 219418

PATIENT
  Age: 58 Year
  Sex: Female

DRUGS (2)
  1. AVASTIN [Suspect]
     Indication: OVARIAN CANCER
     Dosage: 15 MG/KG, Q3W, INTRAVENOUS
     Route: 042
     Dates: start: 20050819
  2. ERLOTINIB (ERLOTINIB) TABLET, 150MG [Suspect]
     Indication: OVARIAN CANCER
     Dosage: 150 MG, QD, ORAL
     Route: 048
     Dates: start: 20050819

REACTIONS (2)
  - SMALL INTESTINAL OBSTRUCTION [None]
  - SMALL INTESTINAL PERFORATION [None]
